FAERS Safety Report 11638161 (Version 2)
Quarter: 2016Q1

REPORT INFORMATION
  Report Type: Spontaneous
  Country: JP (occurrence: JP)
  Receive Date: 20151016
  Receipt Date: 20160222
  Transmission Date: 20160525
  Serious: Yes (Other)
  Sender: FDA-Public Use
  Company Number: JP-EMD SERONO-8047505

PATIENT
  Age: 27 Year
  Sex: Female

DRUGS (1)
  1. SEROPHENE [Suspect]
     Active Substance: CLOMIPHENE CITRATE
     Indication: OVULATION INDUCTION
     Route: 048

REACTIONS (4)
  - Abortion of ectopic pregnancy [Unknown]
  - Hypotension [Unknown]
  - Acute abdomen [Unknown]
  - Heterotopic pregnancy [Unknown]
